FAERS Safety Report 7718367-5 (Version None)
Quarter: 2011Q3

REPORT INFORMATION
  Report Type: 
  Country: None (occurrence: None)
  Receive Date: 20110830
  Receipt Date: 20110825
  Transmission Date: 20111222
  Serious: Yes (Life-Threatening, Other)
  Sender: FDA-Public Use
  Company Number: PHHY2011FR57017

PATIENT
  Sex: Female

DRUGS (6)
  1. AMOXICILLIN [Concomitant]
     Dosage: 1 G, TID
  2. CONTRACEPTIVES [Concomitant]
     Dosage: UNK UKN, UNK
  3. CEFTRIAXONE [Concomitant]
     Dosage: 1 G, UNK
     Dates: start: 20110603
  4. METHIMAZOLE [Suspect]
     Indication: BASEDOW'S DISEASE
     Dosage: 10 MG, UNK
     Dates: start: 20110401, end: 20110601
  5. TEGRETOL [Suspect]
     Indication: EPILEPSY
     Dosage: 400 MG, DAILY
     Dates: start: 20070101, end: 20110602
  6. LEVOTHYROXINE SODIUM [Concomitant]
     Dosage: UNK UKN, UNK

REACTIONS (19)
  - ASTHENIA [None]
  - BLOOD CREATINE PHOSPHOKINASE INCREASED [None]
  - CHEST PAIN [None]
  - BLOOD BILIRUBIN INCREASED [None]
  - ALANINE AMINOTRANSFERASE INCREASED [None]
  - ABDOMINAL PAIN UPPER [None]
  - RHABDOMYOLYSIS [None]
  - LEUKOPENIA [None]
  - NODULE [None]
  - ASPARTATE AMINOTRANSFERASE INCREASED [None]
  - PYREXIA [None]
  - NEUTROPHIL COUNT DECREASED [None]
  - LYMPHOPENIA [None]
  - HEPATOMEGALY [None]
  - WEIGHT DECREASED [None]
  - DIARRHOEA [None]
  - THROMBOCYTOPENIA [None]
  - AGRANULOCYTOSIS [None]
  - VERTIGO [None]
